FAERS Safety Report 9727063 (Version 2)
Quarter: 2013Q4

REPORT INFORMATION
  Report Type: Spontaneous
  Country: ES (occurrence: ES)
  Receive Date: 20131203
  Receipt Date: 20131213
  Transmission Date: 20140711
  Serious: Yes (Other)
  Sender: FDA-Public Use
  Company Number: ES-PFIZER INC-2013342566

PATIENT
  Age: 50 Year
  Sex: Male

DRUGS (3)
  1. PRISTIQ [Suspect]
     Dosage: 50 MG
  2. MIRTAZAPINE [Concomitant]
  3. SEDOTIME [Concomitant]

REACTIONS (2)
  - Paralysis flaccid [Recovered/Resolved]
  - Nerve compression [Recovered/Resolved]
